FAERS Safety Report 6254378-7 (Version None)
Quarter: 2009Q3

REPORT INFORMATION
  Report Type: 
  Country: None (occurrence: None)
  Receive Date: 20090701
  Receipt Date: 20090701
  Transmission Date: 20100115
  Serious: Yes (Other)
  Sender: FDA-Public Use
  Company Number: None

PATIENT
  Age: 34 Year
  Sex: Female
  Weight: 71 kg

DRUGS (2)
  1. ORTHO EVRA [Suspect]
     Indication: CONTRACEPTION
     Dosage: 1 PATCH Q WEEK TRANSDERMAL PAST 2-3 YRS
     Route: 062
  2. MOTRIN [Concomitant]

REACTIONS (1)
  - DEEP VEIN THROMBOSIS [None]
